FAERS Safety Report 7799947-8 (Version None)
Quarter: 2011Q4

REPORT INFORMATION
  Report Type: 
  Country: None (occurrence: None)
  Receive Date: 20111006
  Receipt Date: 20110927
  Transmission Date: 20120403
  Serious: Yes (Hospitalization, Other)
  Sender: FDA-Public Use
  Company Number: US-ASTRAZENECA-2010SE59279

PATIENT
  Age: 61 Year
  Sex: Female

DRUGS (1)
  1. ARIMIDEX [Suspect]
     Route: 048

REACTIONS (5)
  - BREAST MASS [None]
  - METASTASES TO BONE [None]
  - BONE NEOPLASM MALIGNANT [None]
  - HEPATIC NEOPLASM [None]
  - MALAISE [None]
